FAERS Safety Report 17706046 (Version 1)
Quarter: 2020Q2

REPORT INFORMATION
  Report Type: Spontaneous
  Country: DE (occurrence: DE)
  Receive Date: 20200424
  Receipt Date: 20200424
  Transmission Date: 20200714
  Serious: Yes (Other)
  Sender: FDA-Public Use
  Company Number: DE-MYLANLABS-2020M1028349

PATIENT
  Age: 56 Year
  Sex: Female
  Weight: 56 kg

DRUGS (2)
  1. NOVOPULMON 200 NOVOLIZER, PULVER ZUR INHALATION [Suspect]
     Active Substance: BUDESONIDE
     Dosage: 1 PUFF IN THE MORNING AND 1 PUFF IN THE EVENING
     Route: 048
     Dates: start: 20200212, end: 20200215
  2. NOVOPULMON 200 NOVOLIZER, PULVER ZUR INHALATION [Suspect]
     Active Substance: BUDESONIDE
     Indication: LUNG DISORDER
     Dosage: 1 PUFF IN MORNING AND 1 IN EVENING

REACTIONS (3)
  - Oral mucosal eruption [Recovered/Resolved]
  - Burning sensation mucosal [Recovered/Resolved]
  - Rash macular [Recovered/Resolved]

NARRATIVE: CASE EVENT DATE: 20200213
